FAERS Safety Report 21421833 (Version 1)
Quarter: 2022Q4

REPORT INFORMATION
  Report Type: Spontaneous
  Country: DE (occurrence: DE)
  Receive Date: 20221007
  Receipt Date: 20221007
  Transmission Date: 20230112
  Serious: Yes (Hospitalization)
  Sender: FDA-Public Use
  Company Number: DE-ADRED-07948-01

PATIENT
  Age: 39 Year
  Sex: Female
  Weight: 76 kg

DRUGS (7)
  1. CLINDAMYCIN [Suspect]
     Active Substance: CLINDAMYCIN
     Indication: Product used for unknown indication
     Dosage: 1800 MILLIGRAM DAILY; 600 MG, 1-1-1-0
  2. ENOXAPARIN [Suspect]
     Active Substance: ENOXAPARIN
     Indication: Product used for unknown indication
     Dosage: 160 MILLIGRAM DAILY; 80 MG, 1-0-1-0, PRE-FILLED SYRINGES
  3. OMEPRAZOLE [Concomitant]
     Active Substance: OMEPRAZOLE
     Indication: Product used for unknown indication
     Dosage: 20 MILLIGRAM DAILY; 20 MG, 1-0-0-0
  4. TRAMADOL [Concomitant]
     Active Substance: TRAMADOL
     Indication: Product used for unknown indication
     Dosage: 100 MILLIGRAM DAILY; 100 MG, 0-0-1-0
  5. TRAMADOL [Concomitant]
     Active Substance: TRAMADOL
     Dosage: 50 MILLIGRAM DAILY; 50 MG, 0-0-1-0,
  6. CHOLECALCIFEROL [Concomitant]
     Active Substance: CHOLECALCIFEROL
     Indication: Product used for unknown indication
     Dosage: 1000 IU (INTERNATIONAL UNIT) DAILY; 1000 IE, 1-0-0-0
  7. METAMIZOL [Concomitant]
     Active Substance: METAMIZOLE SODIUM
     Indication: Product used for unknown indication
     Dosage: 500 MG/ML, AS NEEDED, DROPS

REACTIONS (4)
  - Mucosal haemorrhage [Unknown]
  - Pain [Unknown]
  - Diarrhoea [Unknown]
  - Haematochezia [Unknown]
